FAERS Safety Report 13568806 (Version 3)
Quarter: 2017Q2

REPORT INFORMATION
  Report Type: Spontaneous
  Country: US (occurrence: US)
  Receive Date: 20170522
  Receipt Date: 20170630
  Transmission Date: 20170830
  Serious: Yes (Hospitalization)
  Sender: FDA-Public Use
  Company Number: US-PFIZER INC-2017223114

PATIENT
  Age: 53 Year
  Sex: Female
  Weight: 79.37 kg

DRUGS (2)
  1. AMOXICILLIN. [Concomitant]
     Active Substance: AMOXICILLIN
     Indication: BRONCHITIS
     Dosage: UNK
     Dates: start: 20170503, end: 20170515
  2. FLUCONAZOLE. [Suspect]
     Active Substance: FLUCONAZOLE
     Indication: ANTIFUNGAL PROPHYLAXIS
     Dosage: 200 MG, 1X/DAY(FOR 3 DOSES/1ST DAY OF ANTIBIOTIC; 2ND DAY OF ANTIBIOTIC; 1 LAST DAY OF ANTIBIOTIC)
     Route: 048
     Dates: start: 20170503, end: 20170515

REACTIONS (18)
  - Chills [Recovering/Resolving]
  - Joint swelling [Recovering/Resolving]
  - Vision blurred [Not Recovered/Not Resolved]
  - Alopecia [Unknown]
  - Diarrhoea [Recovering/Resolving]
  - Visual impairment [Recovered/Resolved]
  - Local swelling [Recovering/Resolving]
  - Face oedema [Recovering/Resolving]
  - Hypersensitivity [Not Recovered/Not Resolved]
  - Pruritus generalised [Not Recovered/Not Resolved]
  - Odynophagia [Recovering/Resolving]
  - Peripheral swelling [Recovering/Resolving]
  - Ear pruritus [Unknown]
  - Swelling face [Recovering/Resolving]
  - Pruritus [Not Recovered/Not Resolved]
  - Eye swelling [Recovered/Resolved]
  - Malaise [Unknown]
  - Dizziness [Not Recovered/Not Resolved]

NARRATIVE: CASE EVENT DATE: 201705
